FAERS Safety Report 12997448 (Version 1)
Quarter: 2016Q4

REPORT INFORMATION
  Report Type: Spontaneous
  Country: US (occurrence: US)
  Receive Date: 20161205
  Receipt Date: 20161205
  Transmission Date: 20170207
  Serious: Yes (Other)
  Sender: FDA-Public Use
  Company Number: US-SCIEGEN PHARMACEUTICALS INC-2016SCILIT00593

PATIENT
  Age: 80 Year
  Sex: Female

DRUGS (1)
  1. OLMESARTAN MEDOXOMIL TABLETS 5 MG, 20 MG, 40 MG [Suspect]
     Active Substance: OLMESARTAN MEDOXOMIL
     Indication: HYPERTENSION
     Dosage: UNK
     Route: 065

REACTIONS (8)
  - Weight decreased [Unknown]
  - Intestinal ulcer [Unknown]
  - Colitis ischaemic [Recovered/Resolved]
  - Coeliac disease [Recovered/Resolved]
  - Presyncope [Unknown]
  - Blood creatinine increased [Unknown]
  - Asthenia [Unknown]
  - Secretion discharge [Unknown]
